FAERS Safety Report 5045913-5 (Version None)
Quarter: 2006Q2

REPORT INFORMATION
  Report Type: 
  Country: None (occurrence: None)
  Receive Date: 20060601
  Receipt Date: 20060217
  Transmission Date: 20061013
  Serious: No
  Sender: FDA-Public Use
  Company Number: 2006-BP-01008BP

PATIENT
  Sex: Male

DRUGS (1)
  1. SPIRIVA [Suspect]
     Indication: RESPIRATORY DISORDER
     Dosage: 36 MCG (18 MCG, TWICE DAILY), IH
     Route: 055
     Dates: start: 20050401

REACTIONS (1)
  - DYSGEUSIA [None]
